FAERS Safety Report 9192417 (Version 2)
Quarter: 2013Q3

REPORT INFORMATION
  Report Type: Report from Study
  Country: NL (occurrence: NL)
  Receive Date: 20130327
  Receipt Date: 20130812
  Transmission Date: 20140515
  Serious: Yes (Hospitalization)
  Sender: FDA-Public Use
  Company Number: NL-ELI_LILLY_AND_COMPANY-NL201303005867

PATIENT
  Age: 66 Year
  Sex: Female

DRUGS (7)
  1. TERIPARATIDE [Suspect]
     Indication: OSTEOPOROSIS
     Dosage: 20 UG, QD
     Route: 058
     Dates: start: 20120604, end: 20130227
  2. PANTOPRAZOL [Concomitant]
     Dosage: 40 MG, QD
  3. METFORMIN [Concomitant]
     Dosage: 500 MG, TID
  4. TOLBUTAMIDE [Concomitant]
     Dosage: 500 MG, QD
  5. IBUPROFEN [Concomitant]
     Dosage: 200 MG, BID
  6. BISOPROLOL [Concomitant]
     Dosage: 1.15 G, QD
  7. TRAMADOL [Concomitant]
     Dosage: 50 MG, BID

REACTIONS (2)
  - Abdominal pain upper [Recovered/Resolved]
  - Back pain [Recovered/Resolved]
